FAERS Safety Report 10023332 (Version 1)
Quarter: 2014Q1

REPORT INFORMATION
  Report Type: Report from Study
  Country: NL (occurrence: NL)
  Receive Date: 20140320
  Receipt Date: 20140320
  Transmission Date: 20141002
  Serious: Yes (Hospitalization)
  Sender: FDA-Public Use
  Company Number: NL-ROCHE-1367402

PATIENT
  Sex: Male

DRUGS (2)
  1. MIRCERA [Suspect]
     Indication: NEPHROGENIC ANAEMIA
     Route: 058
     Dates: start: 20131125
  2. MIRCERA [Suspect]
     Indication: MYELODYSPLASTIC SYNDROME

REACTIONS (1)
  - Aneurysm [Recovering/Resolving]
